FAERS Safety Report 5798050-6 (Version None)
Quarter: 2008Q3

REPORT INFORMATION
  Report Type: 
  Country: None (occurrence: None)
  Receive Date: 20080702
  Receipt Date: 20080623
  Transmission Date: 20090109
  Serious: Yes (Hospitalization)
  Sender: FDA-Public Use
  Company Number: US-BAYER-200810770BCC

PATIENT
  Age: 67 Year
  Sex: Female
  Weight: 54 kg

DRUGS (12)
  1. ASPIRIN [Suspect]
     Indication: ANTICOAGULANT THERAPY
     Dosage: TOTAL DAILY DOSE: 162 MG
     Route: 048
     Dates: start: 20071115, end: 20071115
  2. CANGRELOR VS PLACEBO [Suspect]
     Indication: PERCUTANEOUS CORONARY INTERVENTION
     Route: 042
     Dates: start: 20071116, end: 20071116
  3. CANGRELOR VS PLACEBO [Suspect]
     Dosage: AS USED: 4 ML
     Route: 040
     Dates: start: 20071116, end: 20071116
  4. CLOPIDOGREL [Suspect]
     Indication: PERCUTANEOUS CORONARY INTERVENTION
     Dosage: TOTAL DAILY DOSE: 4 DF
     Route: 048
     Dates: start: 20071116, end: 20071116
  5. CLOPIDOGREL [Suspect]
     Dosage: TOTAL DAILY DOSE: 4 DF
     Route: 048
     Dates: start: 20071116, end: 20071116
  6. EPTIFIBATIDE [Suspect]
     Indication: ANTICOAGULANT THERAPY
     Route: 042
     Dates: start: 20071116, end: 20071117
  7. EPTIFIBATIDE [Suspect]
     Dosage: AS USED: 2 MG
     Route: 040
     Dates: start: 20071116, end: 20071116
  8. HEPARIN [Suspect]
     Indication: ANTICOAGULANT THERAPY
     Route: 042
     Dates: start: 20071115, end: 20071116
  9. CLOPIDOGREL [Suspect]
     Indication: ANTICOAGULANT THERAPY
     Dosage: TOTAL DAILY DOSE: 75 MG
     Route: 048
     Dates: start: 20071111, end: 20071111
  10. CLOPIDOGREL [Concomitant]
  11. HEPARIN [Concomitant]
  12. EPTIFIBATIDE [Concomitant]

REACTIONS (2)
  - HAEMATOCRIT DECREASED [None]
  - HAEMOGLOBIN DECREASED [None]
